FAERS Safety Report 15139584 (Version 1)
Quarter: 2018Q3

REPORT INFORMATION
  Report Type: Spontaneous
  Country: GB (occurrence: GB)
  Receive Date: 20180713
  Receipt Date: 20180713
  Transmission Date: 20181010
  Serious: Yes (Other)
  Sender: FDA-Public Use
  Company Number: GB-TEVA-2018-GB-924142

PATIENT
  Age: 62 Year
  Sex: Female
  Weight: 70 kg

DRUGS (2)
  1. GABAPENTIN. [Suspect]
     Active Substance: GABAPENTIN
     Dosage: DOSAGE TEXT DOSE REDUCED FROM 900MG
     Route: 048
     Dates: end: 20180212
  2. GABAPENTIN. [Suspect]
     Active Substance: GABAPENTIN
     Indication: PROCEDURAL PAIN
     Route: 048
     Dates: start: 20171124

REACTIONS (7)
  - Pruritus [Not Recovered/Not Resolved]
  - Nightmare [Recovering/Resolving]
  - Withdrawal syndrome [Recovering/Resolving]
  - Coordination abnormal [Recovering/Resolving]
  - Sleep disorder [Unknown]
  - Photosensitivity reaction [Not Recovered/Not Resolved]
  - Rash [Not Recovered/Not Resolved]

NARRATIVE: CASE EVENT DATE: 20180124
